FAERS Safety Report 8402788-1 (Version None)
Quarter: 2012Q2

REPORT INFORMATION
  Report Type: 
  Country: None (occurrence: None)
  Receive Date: 20120601
  Receipt Date: 20110626
  Transmission Date: 20120825
  Serious: Yes (Death)
  Sender: FDA-Public Use
  Company Number: AU-ROCHE-1074093

PATIENT
  Sex: Male
  Weight: 95 kg

DRUGS (1)
  1. AVASTIN [Suspect]
     Indication: COLORECTAL CANCER METASTATIC
     Dosage: 475MG
     Dates: start: 20110518, end: 20110524

REACTIONS (1)
  - DEATH [None]
